FAERS Safety Report 10064585 (Version 3)
Quarter: 2014Q2

REPORT INFORMATION
  Report Type: Spontaneous
  Country: AT (occurrence: AT)
  Receive Date: 20140408
  Receipt Date: 20140616
  Transmission Date: 20141212
  Serious: Yes (Other)
  Sender: FDA-Public Use
  Company Number: AT-AMGEN INC.-AUTSP2014024519

PATIENT
  Age: 68 Year
  Sex: Female

DRUGS (2)
  1. ENBREL [Suspect]
     Indication: RHEUMATOID ARTHRITIS
     Dosage: 50 MG, UNK
     Route: 065
     Dates: start: 20140221
  2. ENBREL [Suspect]
     Dosage: 25 MG, UNK
     Route: 065

REACTIONS (2)
  - Circulatory collapse [Unknown]
  - Injection site erythema [Unknown]
